FAERS Safety Report 10199177 (Version 2)
Quarter: 2014Q2

REPORT INFORMATION
  Report Type: Report from Study
  Country: US (occurrence: US)
  Receive Date: 20140527
  Receipt Date: 20140602
  Transmission Date: 20141212
  Serious: Yes (Other)
  Sender: FDA-Public Use
  Company Number: US-ABBVIE-14P-163-1238162-00

PATIENT
  Sex: Female

DRUGS (22)
  1. HUMIRA [Suspect]
     Indication: RHEUMATOID ARTHRITIS
  2. LASIX [Concomitant]
     Indication: SWELLING
  3. NEURONTIN [Concomitant]
     Indication: NEUROPATHY PERIPHERAL
  4. DIGOXIN [Concomitant]
     Indication: CARDIAC DISORDER
  5. SPIRONOLACTONE [Concomitant]
     Indication: SWELLING
  6. METOPROLOL [Concomitant]
     Indication: BLOOD PRESSURE
  7. METOPROLOL [Concomitant]
     Indication: CARDIAC DISORDER
  8. CLONIDINE [Concomitant]
     Indication: BLOOD PRESSURE
     Dosage: AT BETIME
  9. KLOR-CON [Concomitant]
     Indication: PRODUCT USED FOR UNKNOWN INDICATION
  10. LIPITOR [Concomitant]
     Indication: BLOOD CHOLESTEROL
     Dosage: AT BEDTIME
  11. OMEPRAZOLE [Concomitant]
     Indication: GASTROOESOPHAGEAL REFLUX DISEASE
     Dosage: QAM
  12. METHOTREXATE [Concomitant]
     Indication: RHEUMATOID ARTHRITIS
     Dosage: 25MG/1ML SQ QW
     Route: 058
  13. ALENDRONATE SODIUM [Concomitant]
     Indication: RHEUMATOID ARTHRITIS
  14. WARFARIN SODIUM [Concomitant]
     Indication: ANTICOAGULANT THERAPY
  15. VITAMIN D NOS [Concomitant]
     Indication: PRODUCT USED FOR UNKNOWN INDICATION
  16. FOLIC ACID [Concomitant]
     Indication: PRODUCT USED FOR UNKNOWN INDICATION
  17. CALCIUM +D [Concomitant]
     Indication: PRODUCT USED FOR UNKNOWN INDICATION
  18. LANTUS [Concomitant]
     Indication: DIABETES MELLITUS
     Dosage: QHS
     Route: 058
  19. NOVOLOG [Concomitant]
     Indication: DIABETES MELLITUS
     Route: 058
  20. VENTOLIN [Concomitant]
     Indication: ASTHMA
     Dosage: QID PRN
  21. VENTOLIN [Concomitant]
     Indication: HYPERSENSITIVITY
  22. XYZAL [Concomitant]
     Indication: HYPERSENSITIVITY

REACTIONS (16)
  - Gait disturbance [Unknown]
  - Muscular weakness [Unknown]
  - Musculoskeletal pain [Not Recovered/Not Resolved]
  - Cataract [Unknown]
  - Cataract [Unknown]
  - Fall [Unknown]
  - Back pain [Unknown]
  - Arthralgia [Unknown]
  - Hand fracture [Unknown]
  - Tympanic membrane perforation [Unknown]
  - Urinary tract infection [Unknown]
  - Blood glucose increased [Unknown]
  - Limb injury [Unknown]
  - Pain in extremity [Unknown]
  - Onychomadesis [Unknown]
  - Eye disorder [Unknown]
